FAERS Safety Report 15403065 (Version 1)
Quarter: 2018Q3

REPORT INFORMATION
  Report Type: Spontaneous
  Country: US (occurrence: US)
  Receive Date: 20180918
  Receipt Date: 20180918
  Transmission Date: 20181010
  Serious: Yes (Other)
  Sender: FDA-Public Use
  Company Number: None

PATIENT
  Age: 89 Year
  Sex: Female
  Weight: 82.35 kg

DRUGS (20)
  1. BACLOFEN. [Concomitant]
     Active Substance: BACLOFEN
  2. HYDROCODONE?APAP [Concomitant]
     Active Substance: ACETAMINOPHEN\HYDROCODONE
  3. CLARITIN [Concomitant]
     Active Substance: LORATADINE
  4. MAALOX ANTACID [Concomitant]
     Active Substance: ALUMINUM HYDROXIDE\DIMETHICONE\MAGNESIUM HYDROXIDE
  5. OCUVITE [Concomitant]
     Active Substance: VITAMINS
  6. ATORVASTATIN [Concomitant]
     Active Substance: ATORVASTATIN
  7. NAMENDA [Concomitant]
     Active Substance: MEMANTINE HYDROCHLORIDE
  8. SENNA [Concomitant]
     Active Substance: SENNA LEAF\SENNOSIDES\SENNOSIDES A AND B
  9. KEFLEX [Concomitant]
     Active Substance: CEPHALEXIN
  10. MELPHALAN. [Suspect]
     Active Substance: MELPHALAN
     Indication: PLASMA CELL MYELOMA
     Route: 048
     Dates: start: 20180814
  11. FAMOTIDINE. [Concomitant]
     Active Substance: FAMOTIDINE
  12. TYLENOL [Concomitant]
     Active Substance: ACETAMINOPHEN
  13. VITAMIN B12 [Concomitant]
     Active Substance: CYANOCOBALAMIN
  14. LORAZEPAM. [Concomitant]
     Active Substance: LORAZEPAM
  15. METOPROLOL. [Concomitant]
     Active Substance: METOPROLOL
  16. POLYETHYLENE GLYCOL [Concomitant]
     Active Substance: POLYETHYLENE GLYCOLS
  17. LIDOCAINE. [Concomitant]
     Active Substance: LIDOCAINE
  18. MIADERM [Concomitant]
  19. TYLENOL WITH CODEINE [Concomitant]
     Active Substance: ACETAMINOPHEN\CODEINE PHOSPHATE
  20. ASPIRIN. [Concomitant]
     Active Substance: ASPIRIN

REACTIONS (1)
  - Urinary tract infection [None]

NARRATIVE: CASE EVENT DATE: 20180917
